FAERS Safety Report 9469365 (Version 1)
Quarter: 2013Q3

REPORT INFORMATION
  Report Type: Spontaneous
  Country: US (occurrence: US)
  Receive Date: 20130821
  Receipt Date: 20130821
  Transmission Date: 20140515
  Serious: Yes (Hospitalization, Other)
  Sender: FDA-Public Use
  Company Number: US-RB-057442-13

PATIENT
  Age: 64 Year
  Sex: Male

DRUGS (3)
  1. SUBOXONE TABLET [Suspect]
     Indication: DRUG DEPENDENCE
     Route: 060
     Dates: end: 201307
  2. BUPRENORPHINE/NALOXONE GENERIC [Suspect]
     Indication: DRUG DEPENDENCE
     Route: 060
     Dates: start: 201307, end: 201308
  3. CYMBALTA [Concomitant]
     Indication: PAIN IN EXTREMITY
     Dosage: DOSING DETAILS UNKNOWN; DAILY
     Route: 048

REACTIONS (1)
  - Arthropathy [Recovered/Resolved]
